FAERS Safety Report 25728126 (Version 1)
Quarter: 2025Q3

REPORT INFORMATION
  Report Type: Spontaneous
  Country: US (occurrence: US)
  Receive Date: 20250826
  Receipt Date: 20250826
  Transmission Date: 20251021
  Serious: No
  Sender: BAYER HEALTHCARE PHARMACEUTICALS INC.
  Company Number: US-BAYER-2025A113119

PATIENT
  Age: 80 Year
  Sex: Female

DRUGS (1)
  1. KERENDIA [Suspect]
     Active Substance: FINERENONE
     Dates: start: 202508

REACTIONS (2)
  - Dizziness [None]
  - Dysstasia [None]

NARRATIVE: CASE EVENT DATE: 20250801
